FAERS Safety Report 7260383 (Version 2)
Quarter: 2014Q1

REPORT INFORMATION
  Report Type: Spontaneous
  Country: US (occurrence: None)
  Receive Date: 20100119
  Receipt Date: 20140122
  Transmission Date: 20141002
  Serious: Yes (Other)
  Sender: FDA-Public Use
  Company Number: 2010S1000141

PATIENT
  Sex: Male
  Weight: 73.48 kg

DRUGS (2)
  1. FLEET [Suspect]
     Indication: PRODUCT USED FOR UNKNOWN INDICATION
     Route: 048
     Dates: start: 20011127
  2. ZESTRIL (LISINOPRIL) [Concomitant]

REACTIONS (1)
  - Renal failure chronic [None]
